FAERS Safety Report 4582208-8 (Version None)
Quarter: 2005Q1

REPORT INFORMATION
  Report Type: 
  Country: None (occurrence: None)
  Receive Date: 20050214
  Receipt Date: 20050131
  Transmission Date: 20050727
  Serious: Yes (Other)
  Sender: FDA-Public Use
  Company Number: CHPA2003US02265

PATIENT
  Age: 47 Year
  Sex: Male

DRUGS (3)
  1. EX-LAX (NCH) [Suspect]
     Dosage: ORAL
     Route: 048
     Dates: start: 19730101
  2. FEEN-A-MINT (PHENOLPHTHALEIN) [Suspect]
     Dosage: ORAL
     Route: 048
     Dates: start: 19730101
  3. CORRECTOL [Suspect]
     Dosage: ORAL
     Route: 048
     Dates: start: 19730101

REACTIONS (53)
  - ABDOMINAL DISTENSION [None]
  - ABDOMINAL PAIN LOWER [None]
  - ABDOMINAL PAIN UPPER [None]
  - ARTHRALGIA [None]
  - ASBESTOSIS [None]
  - BENIGN PROSTATIC HYPERPLASIA [None]
  - BRONCHITIS CHRONIC [None]
  - BUNION [None]
  - CATARACT [None]
  - CHEST PAIN [None]
  - CHEST WALL PAIN [None]
  - CHOLECYSTITIS CHRONIC [None]
  - CHOLELITHIASIS [None]
  - CONSTIPATION [None]
  - DIABETES MELLITUS NON-INSULIN-DEPENDENT [None]
  - DIABETIC RETINOPATHY [None]
  - DIARRHOEA [None]
  - DIVERTICULUM INTESTINAL [None]
  - DRUG DEPENDENCE [None]
  - DRUG EFFECT DECREASED [None]
  - EAR PAIN [None]
  - ECONOMIC PROBLEM [None]
  - EMOTIONAL DISORDER [None]
  - EUSTACHIAN TUBE DYSFUNCTION [None]
  - EYE PAIN [None]
  - FAECAL OCCULT BLOOD POSITIVE [None]
  - FOOD INTOLERANCE [None]
  - FUNGAL SKIN INFECTION [None]
  - GLAUCOMA [None]
  - HAEMATOCHEZIA [None]
  - HAEMOPTYSIS [None]
  - HAEMORRHOIDS [None]
  - HYPERCHOLESTEROLAEMIA [None]
  - HYPERLIPIDAEMIA [None]
  - HYPERTENSION [None]
  - INJURY [None]
  - IRON DEFICIENCY ANAEMIA [None]
  - LAXATIVE ABUSE [None]
  - MUCOUS MEMBRANE DISORDER [None]
  - OBESITY [None]
  - OSTEOARTHRITIS [None]
  - PAIN [None]
  - PAIN IN EXTREMITY [None]
  - PHARYNGOLARYNGEAL PAIN [None]
  - RECTAL HAEMORRHAGE [None]
  - RHINITIS ALLERGIC [None]
  - SKELETAL INJURY [None]
  - TENDERNESS [None]
  - TINNITUS [None]
  - TREATMENT NONCOMPLIANCE [None]
  - UMBILICAL HERNIA [None]
  - VISION BLURRED [None]
  - WEIGHT DECREASED [None]
